FAERS Safety Report 5743527-2 (Version None)
Quarter: 2008Q2

REPORT INFORMATION
  Report Type: 
  Country: None (occurrence: None)
  Receive Date: 20080519
  Receipt Date: 20080519
  Transmission Date: 20081010
  Serious: No
  Sender: FDA-Public Use
  Company Number: None

PATIENT
  Age: 45 Year
  Sex: Female
  Weight: 61.2356 kg

DRUGS (2)
  1. ATENOLOL [Suspect]
     Indication: ANXIETY
     Dosage: 25MG QD OTHER
     Route: 050
     Dates: start: 20050201, end: 20080510
  2. ATENOLOL [Suspect]
     Indication: TACHYCARDIA
     Dosage: 25MG QD OTHER
     Route: 050
     Dates: start: 20050201, end: 20080510

REACTIONS (1)
  - PRURITUS [None]
